FAERS Safety Report 18967935 (Version 1)
Quarter: 2021Q1

REPORT INFORMATION
  Report Type: Spontaneous
  Country: US (occurrence: US)
  Receive Date: 20210303
  Receipt Date: 20210303
  Transmission Date: 20210420
  Serious: Yes (Death)
  Sender: FDA-Public Use
  Company Number: None

PATIENT
  Age: 75 Year
  Sex: Male
  Weight: 72.57 kg

DRUGS (2)
  1. REMDESIVIR 100 MG [Suspect]
     Active Substance: REMDESIVIR
     Indication: COVID-19
     Dosage: ?          OTHER ROUTE:IVPB?
     Route: 042
     Dates: start: 20200711, end: 20200715
  2. ACTEMRA [Suspect]
     Active Substance: TOCILIZUMAB
     Indication: COVID-19
     Dosage: ?          OTHER ROUTE:IVPB?
     Route: 042
     Dates: start: 20200716, end: 20200716

REACTIONS (1)
  - Death [None]

NARRATIVE: CASE EVENT DATE: 20200729
